FAERS Safety Report 8103378-0 (Version None)
Quarter: 2012Q1

REPORT INFORMATION
  Report Type: 
  Country: None (occurrence: None)
  Receive Date: 20120201
  Receipt Date: 20120127
  Transmission Date: 20120608
  Serious: Yes (Hospitalization, Other)
  Sender: FDA-Public Use
  Company Number: US-PFIZER INC-2012023545

PATIENT
  Sex: Female
  Weight: 68.9 kg

DRUGS (4)
  1. ETHINYL ESTRADIOL AND NORETHINDRONE [Suspect]
     Indication: CONTRACEPTION
     Dosage: 0.3/0.03 MG, 1X/DAY
     Route: 048
     Dates: start: 20111201, end: 20120120
  2. SINGULAIR [Concomitant]
     Indication: ASTHMA
     Dosage: UNK
  3. FLOVENT [Concomitant]
     Indication: ASTHMA
     Dosage: UNK
  4. ALBUTEROL [Concomitant]
     Indication: ASTHMA
     Dosage: UNK, AS NEEDED

REACTIONS (6)
  - CONVULSION [None]
  - FALL [None]
  - SKULL FRACTURE [None]
  - HEAD INJURY [None]
  - HORMONE LEVEL ABNORMAL [None]
  - DIZZINESS [None]
